FAERS Safety Report 8606754-2 (Version None)
Quarter: 2012Q3

REPORT INFORMATION
  Report Type: 
  Country: None (occurrence: None)
  Receive Date: 20120820
  Receipt Date: 20120817
  Transmission Date: 20120928
  Serious: Yes (Death)
  Sender: FDA-Public Use
  Company Number: PE-B.I. PHARMACEUTICALS,INC./RIDGEFIELD-2012-RA-00217RA

PATIENT
  Age: 64 Year
  Sex: Female

DRUGS (1)
  1. MICARDIS HCT [Suspect]
     Indication: HYPERTENSION
     Dosage: STRENGTH: 40MG+12.5MG DAILY DOSE:40MG+12.5MG
     Route: 048
     Dates: start: 20110201, end: 20120711

REACTIONS (1)
  - CEREBROVASCULAR ACCIDENT [None]
